FAERS Safety Report 6613108-7 (Version None)
Quarter: 2010Q1

REPORT INFORMATION
  Report Type: 
  Country: None (occurrence: None)
  Receive Date: 20100223
  Receipt Date: 20100208
  Transmission Date: 20100710
  Serious: Yes (Death)
  Sender: FDA-Public Use
  Company Number: JHP201000051

PATIENT
  Age: 4 Month
  Sex: Male

DRUGS (7)
  1. COLY-MYCIN M PARENTERAL         (COLISTIN) INJECTION, [Suspect]
     Indication: BACTERIAL INFECTION
     Dosage: 40000 IU/KG, DAILY (IN 3 DIVIDED DOSES), INTRAVENOUS
     Route: 042
  2. COLY-MYCIN M PARENTERAL         (COLISTIN) INJECTION, [Suspect]
     Indication: PATHOGEN RESISTANCE
     Dosage: 40000 IU/KG, DAILY (IN 3 DIVIDED DOSES), INTRAVENOUS
     Route: 042
  3. GENTAMICIN [Concomitant]
  4. MEROPENEM [Concomitant]
  5. TRIMETHOPRIM + SULFAMETHOXAZOLE [Concomitant]
  6. TEICOPLANIN (TEICOPLANIN) [Concomitant]
  7. VANCOMYCIN [Concomitant]

REACTIONS (2)
  - NEOPLASM PROGRESSION [None]
  - SPINAL CORD NEOPLASM [None]
